FAERS Safety Report 9982478 (Version 3)
Quarter: 2015Q3

REPORT INFORMATION
  Report Type: Report from Study
  Country: JP (occurrence: JP)
  Receive Date: 20140307
  Receipt Date: 20150922
  Transmission Date: 20151125
  Serious: Yes (Life-Threatening, Other)
  Sender: FDA-Public Use
  Company Number: PHHY2014JP027204

PATIENT
  Age: 70 Year
  Sex: Male

DRUGS (53)
  1. CLOZARIL [Suspect]
     Active Substance: CLOZAPINE
     Dosage: 100 MG, QD
     Route: 048
     Dates: start: 20111116, end: 20111228
  2. CLOZARIL [Suspect]
     Active Substance: CLOZAPINE
     Dosage: 175 MG, QD
     Route: 048
     Dates: start: 20120403, end: 20120409
  3. CLOZARIL [Suspect]
     Active Substance: CLOZAPINE
     Dosage: 425 MG, QD
     Route: 048
     Dates: start: 20120905, end: 20120914
  4. CLOZARIL [Suspect]
     Active Substance: CLOZAPINE
     Dosage: 550 MG, QD
     Route: 048
     Dates: start: 20121013, end: 20121026
  5. CLOZARIL [Suspect]
     Active Substance: CLOZAPINE
     Dosage: 75 MG, QD
     Route: 048
     Dates: start: 20111021, end: 20111108
  6. CLOZARIL [Suspect]
     Active Substance: CLOZAPINE
     Dosage: 150 MG, QD
     Route: 048
     Dates: start: 20120131, end: 20120213
  7. CLOZARIL [Suspect]
     Active Substance: CLOZAPINE
     Dosage: 250 MG, QD
     Route: 048
     Dates: start: 20120509, end: 20120522
  8. CLOZARIL [Suspect]
     Active Substance: CLOZAPINE
     Dosage: 325 MG, QD
     Route: 048
     Dates: start: 20120530, end: 20120605
  9. DISTIGMINE BROMIDE [Concomitant]
     Active Substance: DISTIGMINE BROMIDE
     Indication: PRODUCT USED FOR UNKNOWN INDICATION
     Dosage: 5 MG, QD
     Route: 048
     Dates: start: 20010524, end: 20120104
  10. MAGNESIUM OXIDE. [Concomitant]
     Active Substance: MAGNESIUM OXIDE
     Dosage: 1980 MG, QD
     Route: 048
     Dates: start: 20120123
  11. FLUNITRAZEPAM [Concomitant]
     Active Substance: FLUNITRAZEPAM
     Dosage: 3 MG, QD
     Route: 048
     Dates: start: 20120104, end: 20120106
  12. LIMAS [Concomitant]
     Active Substance: LITHIUM CARBONATE
     Indication: PROPHYLAXIS
     Dosage: 600 MG, QD
     Route: 048
     Dates: start: 20120924, end: 20130109
  13. CLOZARIL [Suspect]
     Active Substance: CLOZAPINE
     Dosage: 600 MG, QD
     Route: 048
     Dates: start: 20121110
  14. PANTETHINE [Concomitant]
     Active Substance: PANTETHINE
     Indication: PRODUCT USED FOR UNKNOWN INDICATION
     Dosage: 400 MG, QD
     Route: 048
     Dates: start: 20110512, end: 20120106
  15. LITHIUM CARBONATE. [Concomitant]
     Active Substance: LITHIUM CARBONATE
     Indication: PRODUCT USED FOR UNKNOWN INDICATION
     Dosage: 600 MG, QD
     Route: 048
     Dates: start: 20021030, end: 20111221
  16. FLUNITRAZEPAM [Concomitant]
     Active Substance: FLUNITRAZEPAM
     Indication: SCHIZOPHRENIA, CATATONIC TYPE
     Dosage: 2 MG, QD
     Route: 048
     Dates: start: 20110310, end: 20120103
  17. TAKEPRON [Concomitant]
     Active Substance: LANSOPRAZOLE
     Indication: PRODUCT USED FOR UNKNOWN INDICATION
     Dosage: 30 MG, QD
     Route: 048
     Dates: start: 20120625
  18. CLOZARIL [Suspect]
     Active Substance: CLOZAPINE
     Dosage: 350 MG, QD
     Route: 048
     Dates: start: 20120606, end: 20120807
  19. URAPIDIL [Concomitant]
     Active Substance: URAPIDIL
     Indication: PRODUCT USED FOR UNKNOWN INDICATION
     Dosage: 30 MG, QD
     Route: 048
     Dates: start: 20021030, end: 20120104
  20. PARIET [Concomitant]
     Active Substance: RABEPRAZOLE SODIUM
     Indication: PRODUCT USED FOR UNKNOWN INDICATION
     Dosage: 10 MG, QD
     Route: 048
     Dates: start: 20120513, end: 20120624
  21. HYPNODIN [Concomitant]
     Indication: PRODUCT USED FOR UNKNOWN INDICATION
     Dosage: 6 DF, QD
     Route: 048
     Dates: start: 20120913, end: 20130227
  22. LIMAS [Concomitant]
     Active Substance: LITHIUM CARBONATE
     Dosage: 1000 MG, QD
     Route: 048
     Dates: start: 20130119
  23. CLOZARIL [Suspect]
     Active Substance: CLOZAPINE
     Dosage: 400 MG, QD
     Route: 048
     Dates: start: 20120815, end: 20120904
  24. CLOZARIL [Suspect]
     Active Substance: CLOZAPINE
     Dosage: 500 MG, QD
     Route: 048
     Dates: start: 20120929, end: 20121005
  25. CLOZARIL [Suspect]
     Active Substance: CLOZAPINE
     Dosage: 525 MG, QD
     Route: 048
     Dates: start: 20121006, end: 20121012
  26. SODIUM RABEPRAZOLE [Concomitant]
     Active Substance: RABEPRAZOLE SODIUM
     Indication: PRODUCT USED FOR UNKNOWN INDICATION
     Dosage: 20 MG, QD
     Route: 048
     Dates: start: 20010714, end: 20121104
  27. PANTETHINE [Concomitant]
     Active Substance: PANTETHINE
     Dosage: 400 MG, QD
     Route: 048
     Dates: start: 20120123, end: 20120804
  28. SELBEX [Concomitant]
     Active Substance: TEPRENONE
     Indication: PRODUCT USED FOR UNKNOWN INDICATION
     Dosage: 50 MG, QD
     Route: 048
     Dates: start: 20120105, end: 20120108
  29. CLOZARIL [Suspect]
     Active Substance: CLOZAPINE
     Dosage: 25 MG, QD
     Route: 048
     Dates: start: 20110805, end: 20110807
  30. CLOZARIL [Suspect]
     Active Substance: CLOZAPINE
     Dosage: 75 MG, QD
     Route: 048
     Dates: start: 20110819, end: 20110908
  31. CLOZARIL [Suspect]
     Active Substance: CLOZAPINE
     Dosage: 50 MG, QD
     Route: 048
     Dates: start: 20110909, end: 20111020
  32. CLOZARIL [Suspect]
     Active Substance: CLOZAPINE
     Dosage: 375 MG, QD
     Route: 048
     Dates: start: 20120808, end: 20120814
  33. CLOZARIL [Suspect]
     Active Substance: CLOZAPINE
     Dosage: 575 MG, QD
     Route: 048
     Dates: start: 20121027, end: 20121109
  34. FLUNITRAZEPAM [Concomitant]
     Active Substance: FLUNITRAZEPAM
     Dosage: 2 MG, QD
     Route: 048
     Dates: start: 20120103, end: 20120627
  35. FERROUS SULFATE [Concomitant]
     Active Substance: FERROUS SULFATE\FERROUS SULFATE, DRIED
     Indication: PRODUCT USED FOR UNKNOWN INDICATION
     Dosage: 105 MG, QD
     Route: 048
     Dates: start: 20120426
  36. CLOZARIL [Suspect]
     Active Substance: CLOZAPINE
     Dosage: 75 MG, QD
     Route: 048
     Dates: start: 20110812, end: 20110814
  37. CLOZARIL [Suspect]
     Active Substance: CLOZAPINE
     Dosage: 100 MG, QD
     Route: 048
     Dates: start: 20110815, end: 20110818
  38. CLOZARIL [Suspect]
     Active Substance: CLOZAPINE
     Dosage: 87.5 MG, QD
     Route: 048
     Dates: start: 20111109, end: 20111115
  39. CLOZARIL [Suspect]
     Active Substance: CLOZAPINE
     Dosage: 150 MG, QD
     Route: 048
     Dates: start: 20120320, end: 20120402
  40. CLOZARIL [Suspect]
     Active Substance: CLOZAPINE
     Dosage: 300 MG, QD
     Route: 048
     Dates: start: 20120523, end: 20120529
  41. CLOZARIL [Suspect]
     Active Substance: CLOZAPINE
     Dosage: 450 MG, QD
     Route: 048
     Dates: start: 20120915, end: 20120921
  42. MAGNESIUM OXIDE. [Concomitant]
     Active Substance: MAGNESIUM OXIDE
     Indication: PRODUCT USED FOR UNKNOWN INDICATION
     Dosage: 1320 MG, QD
     Route: 048
     Dates: start: 20110512, end: 20120106
  43. QUAZEPAM. [Concomitant]
     Active Substance: QUAZEPAM
     Indication: SCHIZOPHRENIA, CATATONIC TYPE
     Dosage: 15 MG, QD
     Route: 048
     Dates: start: 20021030, end: 20120103
  44. UBRETID [Concomitant]
     Active Substance: DISTIGMINE BROMIDE
     Indication: PRODUCT USED FOR UNKNOWN INDICATION
     Dosage: 5 MG, QD
     Route: 048
     Dates: start: 20120308
  45. JUVELA [Concomitant]
     Active Substance: .ALPHA.-TOCOPHEROL\RETINOL
     Indication: PRODUCT USED FOR UNKNOWN INDICATION
     Dosage: 300 MG, QD
     Route: 048
     Dates: start: 20120920
  46. LIMAS [Concomitant]
     Active Substance: LITHIUM CARBONATE
     Dosage: 800 MG, QD
     Route: 048
     Dates: start: 20130110, end: 20130116
  47. CLOZARIL [Suspect]
     Active Substance: CLOZAPINE
     Indication: SCHIZOPHRENIA, CATATONIC TYPE
     Dosage: 12.5 MG, QD
     Route: 048
     Dates: start: 20110804, end: 20110804
  48. CLOZARIL [Suspect]
     Active Substance: CLOZAPINE
     Dosage: 50 MG, QD
     Route: 048
     Dates: start: 20110808, end: 20110811
  49. CLOZARIL [Suspect]
     Active Substance: CLOZAPINE
     Dosage: 125 MG, QD
     Route: 048
     Dates: start: 20111229, end: 20120130
  50. CLOZARIL [Suspect]
     Active Substance: CLOZAPINE
     Dosage: 125 MG, QD
     Route: 048
     Dates: start: 20120214, end: 20120319
  51. CLOZARIL [Suspect]
     Active Substance: CLOZAPINE
     Dosage: 200 MG, QD
     Route: 048
     Dates: start: 20120410, end: 20120508
  52. CLOZARIL [Suspect]
     Active Substance: CLOZAPINE
     Dosage: 475 MG, QD
     Route: 048
     Dates: start: 20120922, end: 20120928
  53. LEUCON [Concomitant]
     Indication: PROPHYLAXIS
     Dosage: 60 MG, QD
     Route: 048
     Dates: start: 20120725

REACTIONS (27)
  - Constipation [Not Recovered/Not Resolved]
  - Red blood cell count decreased [Recovered/Resolved]
  - Platelet count decreased [Recovered/Resolved]
  - Red blood cell count decreased [Not Recovered/Not Resolved]
  - Neutrophil percentage increased [Recovered/Resolved]
  - Neutrophil percentage increased [Recovered/Resolved]
  - White blood cell count increased [Recovered/Resolved]
  - Salivary hypersecretion [Not Recovered/Not Resolved]
  - Neutrophil percentage increased [Recovered/Resolved]
  - Neutrophil percentage increased [Unknown]
  - Pneumonia [Recovered/Resolved]
  - Body temperature decreased [Recovered/Resolved]
  - Platelet count decreased [Recovered/Resolved]
  - White blood cell count decreased [Recovered/Resolved]
  - White blood cell count decreased [Recovered/Resolved]
  - White blood cell count decreased [Recovered/Resolved]
  - Neutrophil percentage increased [Recovered/Resolved]
  - Lymphocyte percentage decreased [Not Recovered/Not Resolved]
  - Platelet count decreased [Recovered/Resolved]
  - White blood cell count decreased [Recovered/Resolved]
  - White blood cell count decreased [Recovered/Resolved]
  - Urinary tract infection [Recovered/Resolved]
  - Lymphocyte percentage decreased [Recovered/Resolved]
  - Platelet count decreased [Recovered/Resolved]
  - Platelet count decreased [Recovered/Resolved]
  - Platelet count decreased [Recovered/Resolved]
  - Body temperature decreased [Recovered/Resolved]

NARRATIVE: CASE EVENT DATE: 20110908
